FAERS Safety Report 5944439-1 (Version None)
Quarter: 2008Q4

REPORT INFORMATION
  Report Type: 
  Country: None (occurrence: None)
  Receive Date: 20081107
  Receipt Date: 20081031
  Transmission Date: 20090506
  Serious: Yes (Hospitalization)
  Sender: FDA-Public Use
  Company Number: US-JNJFOC-20081101373

PATIENT
  Age: 64 Year
  Sex: Male
  Weight: 77.11 kg

DRUGS (3)
  1. LEVAQUIN [Suspect]
     Indication: DRUG USE FOR UNKNOWN INDICATION
     Route: 048
  2. LEVAQUIN [Suspect]
     Indication: PNEUMONIA
     Route: 048
  3. LIPITOR [Concomitant]
     Indication: BLOOD CHOLESTEROL INCREASED
     Route: 048

REACTIONS (4)
  - CONGENITAL SYPHILITIC OSTEOCHONDRITIS [None]
  - MYOCARDIAL INFARCTION [None]
  - RENAL FAILURE [None]
  - URTICARIA [None]
